FAERS Safety Report 9508426 (Version 1)
Quarter: 2013Q3

REPORT INFORMATION
  Report Type: Spontaneous
  Country: JP (occurrence: None)
  Receive Date: 20130905
  Receipt Date: 20130905
  Transmission Date: 20140515
  Serious: Yes (Hospitalization)
  Sender: FDA-Public Use
  Company Number: DSJ-2013-18650

PATIENT
  Age: 66 Year
  Sex: Male

DRUGS (10)
  1. OLMETEC [Suspect]
     Indication: PRODUCT USED FOR UNKNOWN INDICATION
     Route: 048
  2. LITHIUM CARBONATE [Suspect]
     Indication: BIPOLAR DISORDER
     Route: 048
  3. HIBERNA(PROMETHAZINE HYDROCHLORIDE) (PROMETHAZINE HYDROCHLORIDE) [Concomitant]
  4. LEVOTOMIN(LEVOMEPROMAZINE MALEATE)(LEVOMEPROMAZINE MALEATE) [Concomitant]
  5. VEGETAMIN A(PHENOBARBITAL, PROMETHAZINE, CHLORPROMAZINE HYDROCHLORIDE)(TABLET)(PHENOBARBITAL PROMETHAZINE, CHLORPROMAZINE HYDROCHLORIDE) [Concomitant]
  6. MAINTATE(BISOPROLOL FUMARATE)(BISOPROLOL FUMARATE) [Concomitant]
  7. ADALAT CR(NIFEDIPINE)(NIFEDIPINE) [Concomitant]
  8. CRESTOR(ROSUVASTATIN)(ROSUVASTATIN) [Concomitant]
  9. TAKEPRON(LANSOPRAZOLE)(LANSOPRAZOLE) [Concomitant]
  10. BASEN(VOGLIBOSE)(VOGLIBOSE) [Concomitant]

REACTIONS (5)
  - Toxicity to various agents [None]
  - Drug interaction [None]
  - Somnolence [None]
  - Dyskinesia [None]
  - Haemodialysis [None]
